FAERS Safety Report 4381751-4 (Version None)
Quarter: 2004Q2

REPORT INFORMATION
  Report Type: 
  Country: None (occurrence: None)
  Receive Date: 20040603
  Receipt Date: 20030804
  Transmission Date: 20050107
  Serious: Yes (Hospitalization, Other)
  Sender: FDA-Public Use
  Company Number: 200317056US

PATIENT
  Age: 45 Year
  Sex: Female
  Weight: 44.5 kg

DRUGS (7)
  1. LOVENOX [Suspect]
     Indication: CARDIAC ASSISTANCE DEVICE USER
     Dosage: 60 MG BID INJ
     Dates: start: 20030723, end: 20030727
  2. LOVENOX [Suspect]
     Indication: THROMBOSIS
     Dosage: 60 MG BID INJ
     Dates: start: 20030723, end: 20030727
  3. WARFARIN SODIUM [Suspect]
     Indication: CARDIAC ASSISTANCE DEVICE USER
     Dosage: 5 MG QD
     Dates: end: 20030723
  4. WARFARIN SODIUM [Suspect]
     Indication: THROMBOSIS
     Dosage: 5 MG QD
     Dates: end: 20030723
  5. WARFARIN SODIUM [Suspect]
     Indication: CARDIAC ASSISTANCE DEVICE USER
     Dosage: 5 MG QD
     Dates: start: 20030726
  6. WARFARIN SODIUM [Suspect]
     Indication: THROMBOSIS
     Dosage: 5 MG QD
     Dates: start: 20030726
  7. IRON [Concomitant]

REACTIONS (2)
  - HAEMATEMESIS [None]
  - HAEMORRHAGE [None]
